FAERS Safety Report 4515016-4 (Version None)
Quarter: 2004Q4

REPORT INFORMATION
  Report Type: 
  Country: None (occurrence: None)
  Receive Date: 20041126
  Receipt Date: 20041112
  Transmission Date: 20050328
  Serious: Yes (Hospitalization, Other)
  Sender: FDA-Public Use
  Company Number: 2004092102

PATIENT
  Age: 80 Year
  Sex: Female

DRUGS (14)
  1. LIPITOR [Suspect]
     Indication: ILL-DEFINED DISORDER
     Dosage: 5 MG (5 MG, 1 IN 1 D), ORAL
     Route: 048
     Dates: end: 20041012
  2. MOXIFLOXACIN HCL [Suspect]
     Indication: INFECTION
     Dosage: 400 MG (400 MG, 1 IN 1 D), ORAL
     Route: 048
     Dates: start: 20041006, end: 20041012
  3. FUROSEMIDE [Suspect]
     Indication: ILL-DEFINED DISORDER
     Dosage: ORAL
     Route: 048
     Dates: end: 20041014
  4. LEVOTHYROXINE SODIUM [Concomitant]
  5. ATENOLOL [Concomitant]
  6. METAMUCIL (GLUCOSE MONOHYDRATE, ISPAGHULA HUSK) [Concomitant]
  7. LATANOPROST [Concomitant]
  8. DIGOXIN [Concomitant]
  9. ALENDRONATE SODIUM [Concomitant]
  10. TOCOPHEROL CONCENTRATE CAP [Concomitant]
  11. ASCORBIC ACID [Concomitant]
  12. CALCIUM CITRATE (CALCIUM CITRATE) [Concomitant]
  13. WARFARIN SODIUM [Concomitant]
  14. CENTRUM (MINERALS NOS, VITAMINS NOS) [Concomitant]

REACTIONS (17)
  - ABDOMINAL DISCOMFORT [None]
  - ABDOMINAL PAIN [None]
  - BURSA DISORDER [None]
  - CARDIAC FAILURE CONGESTIVE [None]
  - CHEST PAIN [None]
  - CHOLELITHIASIS [None]
  - DIARRHOEA [None]
  - EJECTION FRACTION DECREASED [None]
  - HAEMATOMA [None]
  - INFLAMMATION [None]
  - LACERATION [None]
  - NAUSEA [None]
  - PANCREATITIS ACUTE [None]
  - PURULENCE [None]
  - PYREXIA [None]
  - URINE OUTPUT DECREASED [None]
  - VOMITING [None]
